FAERS Safety Report 15336693 (Version 2)
Quarter: 2018Q3

REPORT INFORMATION
  Report Type: Report from Study
  Country: None (occurrence: US)
  Receive Date: 20180830
  Receipt Date: 20180913
  Transmission Date: 20181010
  Serious: Yes (Other)
  Sender: FDA-Public Use
  Company Number: US-ABBVIE-18S-163-2467523-00

PATIENT
  Age: 79 Year
  Sex: Male
  Weight: 70.37 kg

DRUGS (8)
  1. SIMVASTATIN. [Concomitant]
     Active Substance: SIMVASTATIN
     Indication: BLOOD CHOLESTEROL
  2. ALLOPURINOL. [Concomitant]
     Active Substance: ALLOPURINOL
     Indication: GOUT
  3. SPIRONOLACTONE. [Concomitant]
     Active Substance: SPIRONOLACTONE
     Indication: PRODUCT USED FOR UNKNOWN INDICATION
  4. CARVEDILOL. [Concomitant]
     Active Substance: CARVEDILOL
     Indication: HYPERTENSION
  5. AMIODARONE [Concomitant]
     Active Substance: AMIODARONE
     Indication: HEART RATE ABNORMAL
  6. WARFARIN [Concomitant]
     Active Substance: WARFARIN
     Indication: ANTICOAGULANT THERAPY
  7. ENTRESTO [Concomitant]
     Active Substance: SACUBITRIL\VALSARTAN
     Indication: VASOCONSTRICTION
  8. SYNTHROID [Suspect]
     Active Substance: LEVOTHYROXINE SODIUM
     Indication: THYROID HORMONES DECREASED
     Route: 048
     Dates: start: 201805

REACTIONS (1)
  - Renal failure [Recovered/Resolved]

NARRATIVE: CASE EVENT DATE: 201807
